FAERS Safety Report 4527015-7 (Version None)
Quarter: 2004Q4

REPORT INFORMATION
  Report Type: 
  Country: None (occurrence: None)
  Receive Date: 20041213
  Receipt Date: 20041129
  Transmission Date: 20050328
  Serious: Yes (Disabling)
  Sender: FDA-Public Use
  Company Number: 2004041970

PATIENT
  Age: 51 Year
  Sex: Male
  Weight: 79 kg

DRUGS (3)
  1. SORTIS (ATORVASTATIN) [Suspect]
     Indication: HYPERLIPIDAEMIA
     Dosage: 10 MG (10 MG, 1 IN 1 D), ORAL
     Route: 048
     Dates: start: 20011018, end: 20040518
  2. CABERGOLINE [Concomitant]
  3. TESTOSTERONE HEXAHYDROBENZOATE (TESTOSTERONE HEXAHYDROBENZOATE ) [Concomitant]

REACTIONS (10)
  - ASTHENIA [None]
  - DISTURBANCE IN ATTENTION [None]
  - ERECTILE DYSFUNCTION [None]
  - HYPERHIDROSIS [None]
  - HYPERPROLACTINAEMIA [None]
  - HYPERTHYROIDISM [None]
  - HYPOGONADISM [None]
  - MUSCULAR WEAKNESS [None]
  - MYALGIA [None]
  - THYROID DISORDER [None]
